FAERS Safety Report 17850499 (Version 2)
Quarter: 2020Q3

REPORT INFORMATION
  Report Type: Spontaneous
  Country: CZ (occurrence: CZ)
  Receive Date: 20200602
  Receipt Date: 20200701
  Transmission Date: 20201103
  Serious: Yes (Other)
  Sender: FDA-Public Use
  Company Number: CZ-PFIZER INC-2020212133

PATIENT
  Age: 70 Year
  Sex: Female

DRUGS (4)
  1. PAZOPANIB [Suspect]
     Active Substance: PAZOPANIB
     Indication: UTERINE LEIOMYOSARCOMA
     Dosage: 800 MG, 1X/DAY
     Dates: start: 201812
  2. PAZOPANIB [Suspect]
     Active Substance: PAZOPANIB
     Dosage: 400 MG, 1X/DAY
  3. DOXORUBICIN HCL [Suspect]
     Active Substance: DOXORUBICIN HYDROCHLORIDE
     Indication: UTERINE LEIOMYOSARCOMA
     Dosage: 1ST LINE OF THERAPY, ADMINISTERED 6 CYCLES OF DOXORUBICIN MONOTHERAPY
     Dates: start: 2018, end: 2018
  4. PAZOPANIB [Suspect]
     Active Substance: PAZOPANIB
     Dosage: 200 MG, 1X/DAY (17 MONTHS)

REACTIONS (5)
  - Frequent bowel movements [Unknown]
  - Spinal pain [Unknown]
  - Diarrhoea [Recovering/Resolving]
  - Neoplasm progression [Recovering/Resolving]
  - Hypokalaemia [Unknown]

NARRATIVE: CASE EVENT DATE: 201802
